FAERS Safety Report 6762262-5 (Version None)
Quarter: 2010Q2

REPORT INFORMATION
  Report Type: 
  Country: None (occurrence: None)
  Receive Date: 20100609
  Receipt Date: 20100528
  Transmission Date: 20101027
  Serious: Yes (Hospitalization)
  Sender: FDA-Public Use
  Company Number: NL-JNJFOC-20100600870

PATIENT
  Age: 29 Year

DRUGS (8)
  1. PARACETAMOL [Suspect]
  2. PARACETAMOL [Suspect]
     Indication: DRUG USE FOR UNKNOWN INDICATION
  3. ACETYLSALICYLIC ACID [Suspect]
     Indication: DRUG USE FOR UNKNOWN INDICATION
  4. CLOBAZAM [Suspect]
     Indication: DRUG USE FOR UNKNOWN INDICATION
  5. CHLORAMPHENICOL [Suspect]
     Indication: DRUG USE FOR UNKNOWN INDICATION
  6. DIHYDROERGOTAMINE [Suspect]
     Indication: DRUG USE FOR UNKNOWN INDICATION
  7. DIPYRIDAMOLE [Suspect]
     Indication: DRUG USE FOR UNKNOWN INDICATION
  8. GLAFENINE [Suspect]
     Indication: DRUG USE FOR UNKNOWN INDICATION

REACTIONS (1)
  - TOXIC EPIDERMAL NECROLYSIS [None]
